FAERS Safety Report 19078530 (Version 1)
Quarter: 2021Q1

REPORT INFORMATION
  Report Type: Spontaneous
  Country: US (occurrence: US)
  Receive Date: 20210331
  Receipt Date: 20210331
  Transmission Date: 20210420
  Serious: Yes (Hospitalization)
  Sender: FDA-Public Use
  Company Number: None

PATIENT
  Age: 90 Year
  Sex: Female
  Weight: 77.3 kg

DRUGS (2)
  1. CASIRIVIMAB. [Suspect]
     Active Substance: CASIRIVIMAB
     Indication: COVID-19
     Route: 042
     Dates: start: 20210118
  2. IMDEVIMAB. [Suspect]
     Active Substance: IMDEVIMAB

REACTIONS (2)
  - COVID-19 pneumonia [None]
  - Diarrhoea [None]

NARRATIVE: CASE EVENT DATE: 20210119
